FAERS Safety Report 7884000-5 (Version None)
Quarter: 2011Q4

REPORT INFORMATION
  Report Type: 
  Country: None (occurrence: None)
  Receive Date: 20111102
  Receipt Date: 20111024
  Transmission Date: 20120403
  Serious: Yes (Other)
  Sender: FDA-Public Use
  Company Number: PHEH2011US05644

PATIENT
  Sex: Female

DRUGS (1)
  1. GILENYA [Suspect]
     Indication: MULTIPLE SCLEROSIS
     Dosage: 0.5 MG, QD
     Route: 048
     Dates: start: 20110922, end: 20111023

REACTIONS (6)
  - CHILLS [None]
  - SINUSITIS [None]
  - HAEMOPTYSIS [None]
  - IMMUNODEFICIENCY [None]
  - SWELLING FACE [None]
  - DYSPNOEA [None]
